FAERS Safety Report 9189613 (Version 1)
Quarter: 2013Q1

REPORT INFORMATION
  Report Type: Spontaneous
  Country: ES (occurrence: ES)
  Receive Date: 20130326
  Receipt Date: 20130326
  Transmission Date: 20140127
  Serious: Yes (Life-Threatening, Hospitalization)
  Sender: FDA-Public Use
  Company Number: ES-ACCORD-016924

PATIENT
  Age: 48 Year
  Sex: Female

DRUGS (3)
  1. DOCETAXEL [Suspect]
     Indication: BREAST CANCER
     Dosage: 135 MG EVERY 21 DAYS
     Route: 042
     Dates: start: 20130214, end: 20130214
  2. FILGRASTIM [Suspect]
     Indication: PROPHYLAXIS
     Dosage: 300 MCG X 5  DAYS
     Route: 058
     Dates: start: 20130216, end: 20130220
  3. CYCLOPHOSPHAMIDE [Concomitant]

REACTIONS (2)
  - Lung infiltration [Recovering/Resolving]
  - Febrile neutropenia [Recovered/Resolved]
